FAERS Safety Report 21506934 (Version 2)
Quarter: 2023Q1

REPORT INFORMATION
  Report Type: Report from Study
  Country: US (occurrence: US)
  Receive Date: 20221026
  Receipt Date: 20230112
  Transmission Date: 20230417
  Serious: Yes (Hospitalization)
  Sender: FDA-Public Use
  Company Number: US-PFIZER INC-PV202200066447

PATIENT
  Age: 84 Year
  Sex: Male
  Weight: 105.7 kg

DRUGS (40)
  1. ENZALUTAMIDE [Suspect]
     Active Substance: ENZALUTAMIDE
     Indication: Prostate cancer
     Dosage: UNK UNK, UNKNOWN FREQ.
     Route: 065
  2. ENZALUTAMIDE [Suspect]
     Active Substance: ENZALUTAMIDE
     Indication: Prostate cancer
     Route: 048
     Dates: start: 20161007
  3. WARFARIN [Concomitant]
     Active Substance: WARFARIN
     Indication: Deep vein thrombosis
     Dosage: 5 MG, TU, THU, SA, SU
     Route: 048
     Dates: start: 2014, end: 20160929
  4. WARFARIN [Concomitant]
     Active Substance: WARFARIN
     Dosage: 10 MG, ONCE DAILY (DAILY MWF)
     Route: 048
     Dates: start: 2014, end: 20160929
  5. WARFARIN [Concomitant]
     Active Substance: WARFARIN
     Dosage: 10 MG, ONCE DAILY (ON MONDAY AND FRIDAY)
     Route: 048
     Dates: start: 20160930, end: 201901
  6. WARFARIN [Concomitant]
     Active Substance: WARFARIN
     Dosage: 5 MG, ONCE DAILY (DAILY ON SU, TU, W, TH, SA)
     Route: 048
     Dates: start: 20160930, end: 201901
  7. WARFARIN [Concomitant]
     Active Substance: WARFARIN
     Dosage: 7.5 MG, ONCE DAILY (ON TUES, THURS, FRI, SAT, SUN)
     Route: 048
     Dates: start: 201901, end: 202006
  8. WARFARIN [Concomitant]
     Active Substance: WARFARIN
     Dosage: 5 MG, ONCE DAILY (DAILY ON WED AND MON)
     Route: 048
     Dates: start: 201901, end: 202006
  9. WARFARIN [Concomitant]
     Active Substance: WARFARIN
     Dosage: 5 MG, ONCE DAILY (DAILY ON MON, WED, FRI, SUN)
     Route: 048
     Dates: start: 202006, end: 202008
  10. WARFARIN [Concomitant]
     Active Substance: WARFARIN
     Dosage: 7.5 MG, ONCE DAILY (DAILY ON TUES, THURS, SAT)
     Route: 048
     Dates: start: 202006, end: 202008
  11. WARFARIN [Concomitant]
     Active Substance: WARFARIN
     Dosage: 7.5 MG, ONCE DAILY (ON TUES, THURS, FRI, SAT)
     Route: 048
     Dates: start: 202008, end: 20220406
  12. WARFARIN [Concomitant]
     Active Substance: WARFARIN
     Dosage: 5 MG, ONCE DAILY (DAILY ON MON, WED, SUN)
     Route: 048
     Dates: start: 202008
  13. BENAZEPRIL [Concomitant]
     Active Substance: BENAZEPRIL HYDROCHLORIDE
     Indication: Hypertension
     Route: 048
     Dates: start: 2012, end: 20170119
  14. BENAZEPRIL [Concomitant]
     Active Substance: BENAZEPRIL HYDROCHLORIDE
     Route: 048
     Dates: start: 20170120
  15. FERROUS SULFATE [Concomitant]
     Active Substance: FERROUS SULFATE
     Indication: Nutritional supplementation
     Route: 048
     Dates: start: 2014
  16. BILBERRY [Concomitant]
     Active Substance: BILBERRY
     Indication: Nutritional supplementation
     Route: 048
     Dates: start: 2011
  17. ZINC [Concomitant]
     Active Substance: ZINC
     Indication: Nutritional supplementation
     Route: 048
     Dates: start: 2013
  18. GLUCOSAMINE AND CHONDROITIN WITH MSM [Concomitant]
     Indication: Nutritional supplementation
     Dosage: 3 DF (TABLETS), ONCE DAILY
     Route: 048
     Dates: start: 2013
  19. Vitamin A + D [Concomitant]
     Indication: Nutritional supplementation
     Route: 048
     Dates: start: 2013
  20. VITAMIN E [Concomitant]
     Active Substance: .ALPHA.-TOCOPHEROL
     Indication: Nutritional supplementation
     Route: 048
     Dates: start: 2011
  21. GINKGO [Concomitant]
     Active Substance: GINKGO
     Indication: Nutritional supplementation
     Route: 048
     Dates: start: 2013
  22. OMEGA-3 ACIDS [Concomitant]
     Active Substance: OMEGA-3 FATTY ACIDS
     Indication: Nutritional supplementation
     Dosage: 3 DF (TABLETS), ONCE DAILY
     Route: 048
     Dates: start: 2011
  23. VITAMIN C [Concomitant]
     Active Substance: ASCORBIC ACID
     Indication: Nutritional supplementation
     Route: 048
     Dates: start: 2011
  24. CHROMIUM PICOLINATE [Concomitant]
     Active Substance: CHROMIUM PICOLINATE
     Indication: Nutritional supplementation
     Route: 048
     Dates: start: 2013
  25. LUPRON [Concomitant]
     Active Substance: LEUPROLIDE ACETATE
     Indication: Prostate cancer
     Dosage: 22.5 MG, EVERY 3 MONTHS
     Route: 030
     Dates: start: 20100316, end: 201106
  26. LUPRON [Concomitant]
     Active Substance: LEUPROLIDE ACETATE
     Dosage: 22.5 MG, EVERY 3 MONTHS
     Route: 030
     Dates: start: 20140121, end: 201606
  27. LUPRON [Concomitant]
     Active Substance: LEUPROLIDE ACETATE
     Dosage: 45 MG, EVERY 6 MONTHS
     Route: 030
     Dates: start: 20160607
  28. GABAPENTIN [Concomitant]
     Active Substance: GABAPENTIN
     Indication: Cervical radiculopathy
     Route: 048
     Dates: start: 20161006
  29. TYLENOL [Concomitant]
     Active Substance: ACETAMINOPHEN
     Indication: Cervical radiculopathy
     Route: 048
     Dates: start: 1986
  30. ZINC OXIDE [Concomitant]
     Active Substance: ZINC OXIDE
     Indication: Antifungal treatment
     Route: 061
     Dates: start: 202204
  31. NYSTATIN\TRIAMCINOLONE [Concomitant]
     Active Substance: NYSTATIN\TRIAMCINOLONE
     Indication: Antifungal treatment
     Dosage: 100000UNIT/GM - 0.1% ONCE DAILY
     Route: 061
     Dates: start: 202204
  32. CLOTRIMAZOLE [Concomitant]
     Active Substance: CLOTRIMAZOLE
     Indication: Antifungal treatment
     Route: 061
     Dates: start: 202204
  33. BACITRACIN [Concomitant]
     Active Substance: BACITRACIN
     Indication: Cellulitis
     Dosage: 0.9 G, TWICE DAILY
     Route: 061
     Dates: start: 202204
  34. BISACODYL [Concomitant]
     Active Substance: BISACODYL
     Indication: Constipation
     Route: 048
     Dates: start: 202204
  35. CHLORHEXIDINE [Concomitant]
     Active Substance: CHLORHEXIDINE
     Indication: Cellulitis
     Route: 061
     Dates: start: 202204
  36. GENTAMICIN [Concomitant]
     Active Substance: GENTAMICIN
     Indication: Cellulitis
     Dosage: 0.1 %, THRICE DAILY
     Route: 061
     Dates: start: 202204
  37. HYDROXYZINE HYDROCHLORIDE [Concomitant]
     Active Substance: HYDROXYZINE HYDROCHLORIDE
     Indication: Cellulitis
     Route: 048
     Dates: start: 202204
  38. SENNA [Concomitant]
     Active Substance: SENNA LEAF\SENNOSIDES\SENNOSIDES A AND B
     Indication: Constipation
     Route: 048
     Dates: start: 202204
  39. POLYETHYLENE GLYCOL [Concomitant]
     Active Substance: POLYETHYLENE GLYCOL
     Indication: Constipation
     Route: 048
     Dates: start: 202204
  40. MAGNESIUM HYDROXIDE [Concomitant]
     Active Substance: MAGNESIUM HYDROXIDE
     Indication: Constipation
     Route: 048
     Dates: start: 202204

REACTIONS (1)
  - Urinary tract infection [Recovered/Resolved]

NARRATIVE: CASE EVENT DATE: 20220909
